FAERS Safety Report 4685492-5 (Version None)
Quarter: 2005Q2

REPORT INFORMATION
  Report Type: 
  Country: None (occurrence: None)
  Receive Date: 20050608
  Receipt Date: 20050531
  Transmission Date: 20051028
  Serious: Yes (Other)
  Sender: FDA-Public Use
  Company Number: PHEH2005US06130

PATIENT
  Age: 60 Year
  Sex: Female
  Weight: 50 kg

DRUGS (1)
  1. ZOMETA [Suspect]
     Indication: MULTIPLE MYELOMA
     Dosage: 4 (UNSPECIFIED)
     Dates: start: 20050214

REACTIONS (3)
  - DENTAL OPERATION [None]
  - OSTEONECROSIS [None]
  - PAIN IN JAW [None]
